FAERS Safety Report 8076600-7 (Version None)
Quarter: 2012Q1

REPORT INFORMATION
  Report Type: 
  Country: None (occurrence: None)
  Receive Date: 20120127
  Receipt Date: 20120120
  Transmission Date: 20120608
  Serious: Yes (Death, Other)
  Sender: FDA-Public Use
  Company Number: US-ELI_LILLY_AND_COMPANY-US201201006097

PATIENT
  Sex: Male

DRUGS (2)
  1. PLAVIX [Concomitant]
     Dosage: UNK, UNKNOWN
  2. EFFIENT [Suspect]
     Indication: CORONARY ARTERIAL STENT INSERTION
     Dosage: 10 MG, UNKNOWN
     Route: 065

REACTIONS (2)
  - ILL-DEFINED DISORDER [None]
  - THROMBOSIS [None]
